FAERS Safety Report 9390890 (Version 1)
Quarter: 2013Q3

REPORT INFORMATION
  Report Type: Spontaneous
  Country: US (occurrence: US)
  Receive Date: 20130709
  Receipt Date: 20130709
  Transmission Date: 20140515
  Serious: No
  Sender: FDA-Public Use
  Company Number: US-PFIZER INC-2013200025

PATIENT
  Sex: Male
  Weight: 74.83 kg

DRUGS (1)
  1. DOXYCYCLINE HYCLATE [Suspect]
     Dosage: UNK

REACTIONS (2)
  - Erythema multiforme [Unknown]
  - Drug hypersensitivity [Unknown]
